FAERS Safety Report 8856305 (Version 1)
Quarter: 2012Q4

REPORT INFORMATION
  Report Type: Spontaneous
  Country: DE (occurrence: None)
  Receive Date: 20121018
  Receipt Date: 20121018
  Transmission Date: 20130627
  Serious: Yes (Hospitalization)
  Sender: FDA-Public Use
  Company Number: DSA_60133_2012

PATIENT
  Sex: Female

DRUGS (6)
  1. ELONTRIL [Suspect]
     Indication: DEPRESSION
  2. SULPIRID [Concomitant]
  3. MIRTAZAPIN [Concomitant]
  4. RAMIPRIL HCT [Concomitant]
  5. PANTOPRAZOL [Concomitant]
  6. EUTHYROX [Concomitant]

REACTIONS (1)
  - Drug eruption [None]
